FAERS Safety Report 23576033 (Version 1)
Quarter: 2024Q1

REPORT INFORMATION
  Report Type: Spontaneous
  Country: ES (occurrence: ES)
  Receive Date: 20240228
  Receipt Date: 20240228
  Transmission Date: 20240410
  Serious: Yes (Life-Threatening)
  Sender: FDA-Public Use
  Company Number: None

PATIENT
  Age: 72 Year
  Sex: Male

DRUGS (14)
  1. LENVATINIB [Suspect]
     Active Substance: LENVATINIB
     Indication: Thyroid cancer
     Dosage: 24.0 MG C/24 H
     Route: 048
     Dates: start: 20231113, end: 20240122
  2. ASPIRIN [Concomitant]
     Active Substance: ASPIRIN
     Indication: Acute myocardial infarction
     Dosage: 100.0 MG CO
     Route: 048
     Dates: start: 20210709
  3. DUROGESIC 50 microgramos/H Patches [Concomitant]
     Indication: Neoplasm malignant
     Dosage: 1 PATCH EVERY 72 HOURS (50MCG)
     Dates: start: 20231121
  4. BISOPROLOL [Concomitant]
     Active Substance: BISOPROLOL\BISOPROLOL FUMARATE
     Indication: Acute myocardial infarction
     Dosage: 1.25 MG C/24 H
     Route: 048
     Dates: start: 20210709
  5. OMEPRAZOLE [Concomitant]
     Active Substance: OMEPRAZOLE
     Indication: Product used for unknown indication
     Dosage: 20.0 MG A-DE
     Route: 048
     Dates: start: 20210303
  6. HYDROCORTISONE [Concomitant]
     Active Substance: HYDROCORTISONE
     Indication: Neoplasm malignant
     Dosage: 5.0 MG DE
     Route: 048
     Dates: start: 20220127
  7. MERITENE [Concomitant]
     Indication: Malnutrition
     Dosage: 200.0 ML DECOCE
     Route: 048
     Dates: start: 20231215
  8. CALCIO/VITAMINA D3 [Concomitant]
     Indication: Product used for unknown indication
     Dosage: 1.0 COMP C/24 H
     Route: 048
     Dates: start: 20210716
  9. ENALAPRIL [Concomitant]
     Active Substance: ENALAPRIL
     Indication: Acute myocardial infarction
     Dosage: 2.5 MG DE
     Route: 048
     Dates: start: 20210709
  10. DUROGESIC 25 microgramos/H PATCHES [Concomitant]
     Indication: Neoplasm malignant
     Dosage: 1 PATCH EVERY 72 HOURS (25MCG)
     Dates: start: 20230824
  11. LYRICA [Concomitant]
     Active Substance: PREGABALIN
     Indication: Back pain
     Dosage: 75.0 MG DECOCE
     Route: 048
     Dates: start: 20210325
  12. ABSTRAL [Concomitant]
     Active Substance: FENTANYL CITRATE
     Indication: Neoplasm malignant
     Dosage: 200.0 MCG DECOCE
     Route: 060
     Dates: start: 20231004
  13. EZETIMIBE\ROSUVASTATIN CALCIUM [Concomitant]
     Active Substance: EZETIMIBE\ROSUVASTATIN CALCIUM
     Indication: Acute myocardial infarction
     Dosage: ROSUVASTATIN/EZETIMIBE 20MG/10MG
     Route: 048
     Dates: start: 20220823
  14. LEVOTHYROXINE SODIUM [Concomitant]
     Active Substance: LEVOTHYROXINE SODIUM
     Indication: Hypothyroidism
     Dosage: 100.0 MCG A-DE
     Route: 048
     Dates: start: 20210423

REACTIONS (1)
  - Intestinal perforation [Recovering/Resolving]

NARRATIVE: CASE EVENT DATE: 20240122
